FAERS Safety Report 21944341 (Version 3)
Quarter: 2023Q1

REPORT INFORMATION
  Report Type: Report from Study
  Country: CL (occurrence: CL)
  Receive Date: 20230202
  Receipt Date: 20230327
  Transmission Date: 20230417
  Serious: Yes (Hospitalization)
  Sender: FDA-Public Use
  Company Number: CL-JNJFOC-20221246495

PATIENT
  Age: 35 Year
  Sex: Female

DRUGS (1)
  1. SIMPONI [Suspect]
     Active Substance: GOLIMUMAB
     Indication: Colitis ulcerative
     Route: 058
     Dates: start: 20210921

REACTIONS (4)
  - Bacterial infection [Unknown]
  - Road traffic accident [Recovering/Resolving]
  - Transplant [Not Recovered/Not Resolved]
  - Decreased immune responsiveness [Unknown]
